FAERS Safety Report 7091810-3 (Version None)
Quarter: 2010Q4

REPORT INFORMATION
  Report Type: 
  Country: None (occurrence: None)
  Receive Date: 20101101
  Receipt Date: 20101021
  Transmission Date: 20110411
  Serious: Yes (Other)
  Sender: FDA-Public Use
  Company Number: 2010SP056411

PATIENT
  Age: 62 Year
  Sex: Female

DRUGS (2)
  1. PROVENTIL-HFA [Suspect]
     Indication: PRODUCT USED FOR UNKNOWN INDICATION
  2. PROAIR HFA [Suspect]
     Indication: PRODUCT USED FOR UNKNOWN INDICATION

REACTIONS (4)
  - DEVICE MALFUNCTION [None]
  - LOSS OF CONSCIOUSNESS [None]
  - PRODUCT PACKAGING QUANTITY ISSUE [None]
  - PRODUCT QUALITY ISSUE [None]
